FAERS Safety Report 6905124-2 (Version None)
Quarter: 2010Q3

REPORT INFORMATION
  Report Type: 
  Country: None (occurrence: None)
  Receive Date: 20100804
  Receipt Date: 20091006
  Transmission Date: 20110219
  Serious: No
  Sender: FDA-Public Use
  Company Number: US-PFIZER INC-2009218151

PATIENT
  Sex: Male
  Weight: 100.68 kg

DRUGS (9)
  1. LYRICA [Suspect]
     Dosage: UNK
     Dates: start: 20080101
  2. LIPITOR [Concomitant]
     Dosage: UNK
  3. ASPIRIN [Concomitant]
     Dosage: UNK
  4. CLONAZEPAM [Concomitant]
     Dosage: UNK
  5. CYCLOBENZAPRINE [Concomitant]
     Dosage: UNK
  6. NEXIUM [Concomitant]
     Dosage: UNK
  7. ACETAMINOPHEN AND HYDROCODONE BITARTRATE [Concomitant]
     Dosage: UNK
  8. METFORMIN [Concomitant]
     Dosage: UNK
  9. TYLENOL [Concomitant]
     Dosage: UNK

REACTIONS (5)
  - ARTHRALGIA [None]
  - BURNING SENSATION [None]
  - MUSCLE SPASMS [None]
  - NERVE COMPRESSION [None]
  - SCIATIC NERVE NEUROPATHY [None]
